FAERS Safety Report 23356358 (Version 1)
Quarter: 2024Q1

REPORT INFORMATION
  Report Type: Spontaneous
  Country: FR (occurrence: FR)
  Receive Date: 20240102
  Receipt Date: 20240102
  Transmission Date: 20240410
  Serious: Yes (Hospitalization)
  Sender: FDA-Public Use
  Company Number: None

PATIENT
  Age: 70 Year
  Sex: Male
  Weight: 60 kg

DRUGS (10)
  1. METHOTREXATE [Suspect]
     Active Substance: METHOTREXATE
     Indication: Laryngeal squamous cell carcinoma
     Dates: start: 20231103, end: 20231103
  2. SIMVASTATIN [Concomitant]
     Active Substance: SIMVASTATIN
  3. OXYCODONE [Concomitant]
     Active Substance: OXYCODONE
  4. METRONIDAZOLE [Concomitant]
     Active Substance: METRONIDAZOLE
  5. TACROLIMUS [Concomitant]
     Active Substance: TACROLIMUS
  6. KARDEGIC [Concomitant]
     Active Substance: ASPIRIN DL-LYSINE
     Dosage: 75 MG, POWDER FOR ORAL SOLUTION IN SACHET-DOSE
  7. LEUCOVORIN CALCIUM [Concomitant]
     Active Substance: LEUCOVORIN CALCIUM
  8. NICOTINE [Concomitant]
     Active Substance: NICOTINE
  9. FENTANYL [Concomitant]
     Active Substance: FENTANYL\FENTANYL CITRATE
  10. OXAZEPAM [Concomitant]
     Active Substance: OXAZEPAM
     Dosage: 10 MG, TABLET

REACTIONS (1)
  - Febrile bone marrow aplasia [Recovered/Resolved]

NARRATIVE: CASE EVENT DATE: 20231108
